FAERS Safety Report 16514870 (Version 2)
Quarter: 2019Q3

REPORT INFORMATION
  Report Type: Spontaneous
  Country: US (occurrence: US)
  Receive Date: 20190702
  Receipt Date: 20190729
  Transmission Date: 20191004
  Serious: No
  Sender: FDA-Public Use
  Company Number: PHEH2019US026812

PATIENT
  Sex: Female
  Weight: 62 kg

DRUGS (1)
  1. CHOLESTYRAMINE FOR ORAL SUSPENSION USP [Suspect]
     Active Substance: CHOLESTYRAMINE
     Indication: IRRITABLE BOWEL SYNDROME
     Dosage: 8 G, QD
     Route: 048
     Dates: start: 201701

REACTIONS (3)
  - Gastric disorder [Unknown]
  - Tooth discolouration [Not Recovered/Not Resolved]
  - Product taste abnormal [Unknown]
